FAERS Safety Report 16117504 (Version 2)
Quarter: 2019Q2

REPORT INFORMATION
  Report Type: Report from Study
  Country: HR (occurrence: HR)
  Receive Date: 20190326
  Receipt Date: 20190418
  Transmission Date: 20190711
  Serious: Yes (Other)
  Sender: FDA-Public Use
  Company Number: HR-ROCHE-2289948

PATIENT
  Age: 34 Year
  Sex: Male

DRUGS (1)
  1. OCRELIZUMAB. [Suspect]
     Active Substance: OCRELIZUMAB
     Indication: PRIMARY PROGRESSIVE MULTIPLE SCLEROSIS
     Dosage: 600 MG OCRELIZUMAB AS TWO 300 MG INFUSIONS SEPARATED BY 14 DAYS, EVERY 24 WEEKS.
     Route: 042

REACTIONS (1)
  - Hypogammaglobulinaemia [Recovered/Resolved]
